FAERS Safety Report 4932592-8 (Version None)
Quarter: 2006Q1

REPORT INFORMATION
  Report Type: 
  Country: None (occurrence: None)
  Receive Date: 20060301
  Receipt Date: 20060214
  Transmission Date: 20060701
  Serious: Yes (Hospitalization)
  Sender: FDA-Public Use
  Company Number: 219701

PATIENT
  Age: 66 Year
  Sex: Male
  Weight: 69.9 kg

DRUGS (6)
  1. AVASTIN [Suspect]
     Indication: COLON CANCER
     Dosage: 525 MG, Q3W, INTRAVENOUS
     Route: 042
     Dates: start: 20050816
  2. CAPECITABINE(CAPECITABINE) [Suspect]
     Indication: COLON CANCER
     Dosage: 1800 MG, Q2W/X3, ORAL
     Route: 048
     Dates: start: 20050816
  3. OXALIPLATIN(OXALIPLATIN) [Suspect]
     Indication: COLON CANCER
     Dosage: 172.5 MG, Q3W, INTRAVENOUS
     Route: 042
     Dates: start: 20050816
  4. IRON (IRON NOS) [Concomitant]
  5. COLACE (DOCUSATE SODIUM) [Concomitant]
  6. SENOKOT [Concomitant]

REACTIONS (3)
  - ABDOMINAL ABSCESS [None]
  - INTESTINAL FISTULA [None]
  - POSTOPERATIVE ABSCESS [None]
